FAERS Safety Report 8240865-9 (Version None)
Quarter: 2012Q1

REPORT INFORMATION
  Report Type: 
  Country: None (occurrence: None)
  Receive Date: 20120328
  Receipt Date: 20120321
  Transmission Date: 20120608
  Serious: Yes (Death)
  Sender: FDA-Public Use
  Company Number: MX-UCBSA-053824

PATIENT
  Age: 31 Year
  Sex: Male
  Weight: 76 kg

DRUGS (2)
  1. DEPAKENE [Concomitant]
     Indication: EPILEPSY
     Route: 048
     Dates: start: 20100101, end: 20111225
  2. VIMPAT [Suspect]
     Indication: EPILEPSY
     Route: 048
     Dates: start: 20110112, end: 20111225

REACTIONS (2)
  - RESPIRATORY ARREST [None]
  - PNEUMONIA [None]
